FAERS Safety Report 22810346 (Version 4)
Quarter: 2025Q1

REPORT INFORMATION
  Report Type: Spontaneous
  Country: US (occurrence: US)
  Receive Date: 20230810
  Receipt Date: 20250102
  Transmission Date: 20250409
  Serious: No
  Sender: PFIZER
  Company Number: US-PFIZER INC-202300272031

PATIENT
  Age: 79 Year
  Sex: Female

DRUGS (2)
  1. DEPO-MEDROL [Suspect]
     Active Substance: METHYLPREDNISOLONE ACETATE
  2. PREDNISOLONE ACETATE\SULFACETAMIDE SODIUM [Suspect]
     Active Substance: PREDNISOLONE ACETATE\SULFACETAMIDE SODIUM

REACTIONS (3)
  - Dyspnoea [Unknown]
  - Rash [Unknown]
  - Drug hypersensitivity [Unknown]
